FAERS Safety Report 7572859-0 (Version None)
Quarter: 2011Q2

REPORT INFORMATION
  Report Type: 
  Country: None (occurrence: None)
  Receive Date: 20110627
  Receipt Date: 20110615
  Transmission Date: 20111010
  Serious: Yes (Other)
  Sender: FDA-Public Use
  Company Number: US-ELI_LILLY_AND_COMPANY-US201106005937

PATIENT
  Sex: Female

DRUGS (4)
  1. PERCOCET [Concomitant]
  2. CYMBALTA [Suspect]
     Indication: DEPRESSION
     Dosage: 30 MG, UNKNOWN
  3. AMBIEN [Concomitant]
  4. CYMBALTA [Suspect]
     Dosage: 60 MG, UNKNOWN

REACTIONS (1)
  - DERMATITIS EXFOLIATIVE [None]
